FAERS Safety Report 7820320-8 (Version None)
Quarter: 2011Q4

REPORT INFORMATION
  Report Type: 
  Country: None (occurrence: None)
  Receive Date: 20111018
  Receipt Date: 20111012
  Transmission Date: 20120403
  Serious: Yes (Other)
  Sender: FDA-Public Use
  Company Number: US-ABBOTT-11P-163-0863401-00

PATIENT
  Age: 71 Year
  Sex: Female

DRUGS (13)
  1. DILTIAZEM HCL [Interacting]
     Indication: PRODUCT USED FOR UNKNOWN INDICATION
  2. CETIRIZINE HCL [Interacting]
     Indication: PRODUCT USED FOR UNKNOWN INDICATION
  3. FOLIC ACID [Interacting]
     Indication: PRODUCT USED FOR UNKNOWN INDICATION
  4. WARFARIN SODIUM [Interacting]
     Indication: PRODUCT USED FOR UNKNOWN INDICATION
  5. BUMETANIDE [Interacting]
     Indication: PRODUCT USED FOR UNKNOWN INDICATION
  6. POTASSIUM CHLORIDE [Suspect]
     Indication: PRODUCT USED FOR UNKNOWN INDICATION
  7. LATANOPROST [Interacting]
     Indication: PRODUCT USED FOR UNKNOWN INDICATION
  8. METOLAZONE [Interacting]
     Indication: PRODUCT USED FOR UNKNOWN INDICATION
  9. SIMVASTATIN [Interacting]
     Indication: PRODUCT USED FOR UNKNOWN INDICATION
  10. TIKOSYN [Interacting]
     Indication: ATRIAL FIBRILLATION
  11. LORAZEPAM [Interacting]
     Indication: PRODUCT USED FOR UNKNOWN INDICATION
  12. SPIRONOLACTONE [Interacting]
     Indication: PRODUCT USED FOR UNKNOWN INDICATION
  13. METOPROLOL SUCCINATE [Interacting]
     Indication: PRODUCT USED FOR UNKNOWN INDICATION

REACTIONS (11)
  - EYE OEDEMA [None]
  - NASAL DISORDER [None]
  - VISUAL IMPAIRMENT [None]
  - MALAISE [None]
  - DYSPNOEA [None]
  - VENTRICULAR EXTRASYSTOLES [None]
  - BLOOD ELECTROLYTES ABNORMAL [None]
  - MENTAL IMPAIRMENT [None]
  - OEDEMA [None]
  - BLOOD CREATININE INCREASED [None]
  - DIARRHOEA [None]
